FAERS Safety Report 20053515 (Version 5)
Quarter: 2022Q1

REPORT INFORMATION
  Report Type: Spontaneous
  Country: JP (occurrence: JP)
  Receive Date: 20211110
  Receipt Date: 20220221
  Transmission Date: 20220423
  Serious: Yes (Hospitalization)
  Sender: FDA-Public Use
  Company Number: JP-DSJP-DSJ-2021-119877

PATIENT
  Age: 49 Year
  Sex: Female
  Weight: 52.2 kg

DRUGS (5)
  1. ENHERTU [Suspect]
     Active Substance: FAM-TRASTUZUMAB DERUXTECAN-NXKI
     Indication: HER2 positive breast cancer
     Dosage: 3.2 MG/KG, ONCE EVERY 3 WK
     Route: 041
     Dates: start: 20210623, end: 20210623
  2. ENHERTU [Suspect]
     Active Substance: FAM-TRASTUZUMAB DERUXTECAN-NXKI
     Indication: Invasive ductal breast carcinoma
     Dosage: 3.2 MG/KG, ONCE EVERY 3 WK
     Route: 041
     Dates: start: 20210726, end: 20210726
  3. ENHERTU [Suspect]
     Active Substance: FAM-TRASTUZUMAB DERUXTECAN-NXKI
     Dosage: 3.2 MG/KG, ONCE EVERY 3 WK
     Route: 041
     Dates: start: 20210824, end: 20210824
  4. ENHERTU [Suspect]
     Active Substance: FAM-TRASTUZUMAB DERUXTECAN-NXKI
     Dosage: 3.2 MG/KG, ONCE EVERY 3 WK
     Route: 041
     Dates: start: 20210914, end: 20210914
  5. ENHERTU [Suspect]
     Active Substance: FAM-TRASTUZUMAB DERUXTECAN-NXKI
     Dosage: 3.2 MG/KG, ONCE EVERY 3 WK
     Route: 041
     Dates: start: 20211005, end: 20211005

REACTIONS (3)
  - Hepatic function abnormal [Not Recovered/Not Resolved]
  - Disease progression [Unknown]
  - Prescribed underdose [Unknown]

NARRATIVE: CASE EVENT DATE: 20210623
